FAERS Safety Report 9672031 (Version 2)
Quarter: 2013Q4

REPORT INFORMATION
  Report Type: Spontaneous
  Country: FR (occurrence: FR)
  Receive Date: 20131106
  Receipt Date: 20131223
  Transmission Date: 20140711
  Serious: Yes (Hospitalization)
  Sender: FDA-Public Use
  Company Number: FR-GLAXOSMITHKLINE-B0936420A

PATIENT
  Age: 53 Year
  Sex: Female

DRUGS (7)
  1. ARIXTRA [Suspect]
     Indication: THROMBOSIS PROPHYLAXIS
     Dosage: 7.5MG PER DAY
     Route: 058
     Dates: start: 20130601, end: 20130608
  2. COVERSYL [Concomitant]
     Route: 065
  3. CARDENSIEL [Concomitant]
     Route: 065
  4. LASILIX [Concomitant]
     Route: 065
  5. DIFFU K [Concomitant]
     Route: 065
  6. HEMIGOXINE NATIVELLE [Concomitant]
     Route: 065
  7. PREVISCAN (FLUINDIONE) [Concomitant]
     Indication: ATRIAL FIBRILLATION
     Route: 065
     Dates: end: 2013

REACTIONS (4)
  - Peritoneal haemorrhage [Recovered/Resolved]
  - Anaemia [Recovered/Resolved]
  - Off label use [Unknown]
  - Medication error [Unknown]
